FAERS Safety Report 15766050 (Version 1)
Quarter: 2018Q4

REPORT INFORMATION
  Report Type: Spontaneous
  Country: US (occurrence: US)
  Receive Date: 20181227
  Receipt Date: 20181227
  Transmission Date: 20190205
  Serious: No
  Sender: FDA-Public Use
  Company Number: US-SA-2018SA391194

PATIENT
  Age: 65 Year
  Sex: Male

DRUGS (8)
  1. LISINOPRIL + HIDROCLOROTIAZIDA [Concomitant]
     Active Substance: HYDROCHLOROTHIAZIDE\LISINOPRIL
     Dosage: UNK UNK, BID
     Route: 048
     Dates: start: 20180713
  2. MESALAMINE POWDER [Concomitant]
     Dosage: 400 MG, QD
     Route: 048
     Dates: start: 20180713
  3. LUMIZYME [Suspect]
     Active Substance: ALGLUCOSIDASE ALFA
     Indication: GLYCOGEN STORAGE DISEASE TYPE II
     Dosage: 3300 MG, QOW
     Route: 041
     Dates: start: 20130813
  4. ASPIRIN. [Concomitant]
     Active Substance: ASPIRIN
     Dosage: 1 TABQD
     Route: 048
     Dates: start: 20180713
  5. FELODIPINE. [Concomitant]
     Active Substance: FELODIPINE
     Dosage: 1TAB, QD
     Route: 048
     Dates: start: 20180713
  6. CARDIA [Concomitant]
     Active Substance: AJMALINE
     Dosage: 2 MG, QD
     Route: 048
     Dates: start: 20180713
  7. CABERGOLINE. [Concomitant]
     Active Substance: CABERGOLINE
     Dosage: 1.5 MG, BID
     Route: 048
     Dates: start: 20180713
  8. CRESTOR [Concomitant]
     Active Substance: ROSUVASTATIN CALCIUM
     Dosage: 1 TAB,QD
     Route: 048

REACTIONS (1)
  - Chest pain [Unknown]

NARRATIVE: CASE EVENT DATE: 2018
